FAERS Safety Report 6198738-1 (Version None)
Quarter: 2009Q2

REPORT INFORMATION
  Report Type: 
  Country: None (occurrence: None)
  Receive Date: 20090521
  Receipt Date: 20090507
  Transmission Date: 20091009
  Serious: Yes (Hospitalization)
  Sender: FDA-Public Use
  Company Number: ZA-GENENTECH-283038

PATIENT
  Sex: Female

DRUGS (2)
  1. AVASTIN [Suspect]
     Indication: NEOPLASM MALIGNANT
     Route: 065
  2. ELOXATIN [Suspect]
     Indication: NEOPLASM MALIGNANT
     Route: 065

REACTIONS (6)
  - ABDOMINAL PAIN [None]
  - BACK PAIN [None]
  - HEADACHE [None]
  - HYPERTENSION [None]
  - INFUSION RELATED REACTION [None]
  - PARAESTHESIA ORAL [None]
